FAERS Safety Report 5813291-7 (Version None)
Quarter: 2008Q3

REPORT INFORMATION
  Report Type: 
  Country: None (occurrence: None)
  Receive Date: 20080717
  Receipt Date: 20080716
  Transmission Date: 20090109
  Serious: Yes (Other)
  Sender: FDA-Public Use
  Company Number: DE-JNJFOC-20080702550

PATIENT
  Age: 70 Year
  Sex: Male

DRUGS (1)
  1. TAVANIC [Suspect]
     Indication: BRONCHITIS
     Route: 048

REACTIONS (4)
  - CENTRAL NERVOUS SYSTEM LESION [None]
  - MUSCLE SPASMS [None]
  - PARAESTHESIA [None]
  - PARALYSIS [None]
